FAERS Safety Report 12079866 (Version 2)
Quarter: 2016Q1

REPORT INFORMATION
  Report Type: Spontaneous
  Country: JP (occurrence: JP)
  Receive Date: 20160216
  Receipt Date: 20160307
  Transmission Date: 20160526
  Serious: Yes (Life-Threatening, Hospitalization, Other)
  Sender: FDA-Public Use
  Company Number: JP-ELI_LILLY_AND_COMPANY-JP201602005159

PATIENT
  Age: 68 Year
  Sex: Male
  Weight: 44.5 kg

DRUGS (7)
  1. CEREKINON [Concomitant]
     Active Substance: TRIMEBUTINE
     Indication: GASTRITIS
     Dosage: UNK
     Route: 048
     Dates: end: 20160212
  2. CYRAMZA [Suspect]
     Active Substance: RAMUCIRUMAB
     Indication: GASTRIC CANCER STAGE IV
     Dosage: 390 MG, DAY 1 + 15 OF A CYCLE
     Route: 042
     Dates: start: 20151202, end: 20160127
  3. S.M.                               /00273401/ [Concomitant]
     Indication: GASTRITIS
     Dosage: UNK
     Route: 048
     Dates: end: 20160212
  4. PACLITAXEL. [Suspect]
     Active Substance: PACLITAXEL
     Indication: GASTRIC CANCER STAGE IV
     Dosage: 120 MG, DAY 1, 8 + 15 OF A CYCLE
     Route: 042
     Dates: start: 20151202, end: 20160203
  5. DEPAS [Concomitant]
     Active Substance: ETIZOLAM
     Indication: INSOMNIA
     Dosage: UNK
     Route: 048
     Dates: end: 20160212
  6. PARIET [Concomitant]
     Active Substance: RABEPRAZOLE SODIUM
     Indication: GASTROOESOPHAGEAL REFLUX DISEASE
     Dosage: UNK
     Route: 048
     Dates: end: 20160212
  7. OLMETEC [Concomitant]
     Active Substance: OLMESARTAN MEDOXOMIL
     Indication: HYPERTENSION
     Dosage: UNK
     Route: 048
     Dates: end: 20160212

REACTIONS (3)
  - Gastrointestinal perforation [Recovering/Resolving]
  - Malignant neoplasm progression [Unknown]
  - Neutrophil count decreased [Recovered/Resolved]

NARRATIVE: CASE EVENT DATE: 201601
